FAERS Safety Report 5375086-0 (Version None)
Quarter: 2007Q2

REPORT INFORMATION
  Report Type: 
  Country: None (occurrence: None)
  Receive Date: 20070629
  Receipt Date: 20070430
  Transmission Date: 20071010
  Serious: Yes (Death, Other)
  Sender: FDA-Public Use
  Company Number: US-PURDUE-USA_2007_0027670

PATIENT
  Sex: Male

DRUGS (1)
  1. OXYCONTIN [Suspect]
     Indication: CANCER PAIN

REACTIONS (11)
  - ANGER [None]
  - ANHEDONIA [None]
  - ANOREXIA [None]
  - DEATH [None]
  - FALL [None]
  - FRACTURE [None]
  - HALLUCINATION, VISUAL [None]
  - HYPERSOMNIA [None]
  - MENTAL DISORDER [None]
  - SPOUSAL ABUSE [None]
  - VERBAL ABUSE [None]
